FAERS Safety Report 9940591 (Version 1)
Quarter: 2014Q1

REPORT INFORMATION
  Report Type: Spontaneous
  Country: FI (occurrence: FI)
  Receive Date: 20140303
  Receipt Date: 20140303
  Transmission Date: 20141002
  Serious: Yes (Death, Hospitalization)
  Sender: FDA-Public Use
  Company Number: FI-MYLANLABS-2014S1003877

PATIENT
  Age: 90 Year
  Sex: Female

DRUGS (3)
  1. TEMAZEPAM [Suspect]
     Indication: POISONING DELIBERATE
     Route: 065
  2. TEMAZEPAM [Suspect]
     Indication: OFF LABEL USE
     Route: 065
  3. BISOPROLOL [Concomitant]
     Route: 065

REACTIONS (5)
  - Poisoning deliberate [Fatal]
  - Subdural haemorrhage [Fatal]
  - Arteriosclerosis [Fatal]
  - General physical health deterioration [Recovering/Resolving]
  - Loss of consciousness [Recovering/Resolving]
